FAERS Safety Report 5140581-6 (Version None)
Quarter: 2006Q4

REPORT INFORMATION
  Report Type: 
  Country: None (occurrence: None)
  Receive Date: 20061025
  Receipt Date: 20061010
  Transmission Date: 20070319
  Serious: Yes (Hospitalization)
  Sender: FDA-Public Use
  Company Number: 06-0127TG

PATIENT
  Age: 60 Year
  Sex: Female

DRUGS (2)
  1. FENOFIBRATE [Suspect]
     Indication: HYPERTRIGLYCERIDAEMIA
     Dosage: 250 MG, DAILY,PO
     Route: 048
     Dates: start: 20031201, end: 20031214
  2. RALOXIFENE HCL [Suspect]
     Indication: OSTEOPOROSIS PROPHYLAXIS
     Dosage: 60 MG, DAILY, PO
     Route: 048
     Dates: end: 20031214

REACTIONS (8)
  - CHOLELITHIASIS [None]
  - CHOLESTASIS [None]
  - CHROMATURIA [None]
  - ERYTHEMA [None]
  - HEPATIC NECROSIS [None]
  - HEPATITIS [None]
  - PRURIGO [None]
  - RASH MORBILLIFORM [None]
